FAERS Safety Report 7693252-6 (Version None)
Quarter: 2011Q3

REPORT INFORMATION
  Report Type: 
  Country: None (occurrence: None)
  Receive Date: 20110819
  Receipt Date: 20110804
  Transmission Date: 20111222
  Serious: Yes (Other)
  Sender: FDA-Public Use
  Company Number: PHEH2011US00738

PATIENT

DRUGS (13)
  1. DIOVAN [Suspect]
  2. DIOVAN HCT [Suspect]
  3. TEKTURNA [Suspect]
  4. BYSTOLIC [Suspect]
  5. LISINOPRIL [Suspect]
  6. ATENOLOL [Suspect]
  7. CARDIZEM [Suspect]
  8. NORVASC [Suspect]
  9. AVAPRO [Suspect]
  10. CLONIDINE [Concomitant]
  11. HYDROCHLOROTHIAZIDE [Suspect]
  12. COREG [Suspect]
  13. ALDACTONE [Suspect]

REACTIONS (7)
  - ASTHMA [None]
  - THROAT TIGHTNESS [None]
  - URTICARIA [None]
  - HYPERTENSION [None]
  - CHEST DISCOMFORT [None]
  - DRUG HYPERSENSITIVITY [None]
  - PALPITATIONS [None]
